FAERS Safety Report 11813574 (Version 1)
Quarter: 2015Q4

REPORT INFORMATION
  Report Type: Spontaneous
  Country: DE (occurrence: DE)
  Receive Date: 20151209
  Receipt Date: 20151209
  Transmission Date: 20160305
  Serious: Yes (Life-Threatening, Hospitalization)
  Sender: FDA-Public Use
  Company Number: PHHY2015DE089435

PATIENT
  Age: 74 Year
  Sex: Female
  Weight: 104 kg

DRUGS (22)
  1. ULTIBRO BREEZHALER [Suspect]
     Active Substance: GLYCOPYRRONIUM\INDACATEROL
     Indication: DYSPNOEA
  2. AMLODIPINE [Concomitant]
     Active Substance: AMLODIPINE BESYLATE
     Indication: PRODUCT USED FOR UNKNOWN INDICATION
     Dosage: 5 MG, UNK
     Route: 065
     Dates: start: 20150619
  3. NOREPINEPHRINE [Concomitant]
     Active Substance: NOREPINEPHRINE\NOREPINEPHRINE BITARTRATE
     Indication: PRODUCT USED FOR UNKNOWN INDICATION
     Dosage: 10 MG, UNK
     Route: 065
     Dates: start: 20150619, end: 20150620
  4. LEVODOPA [Concomitant]
     Active Substance: LEVODOPA
     Dosage: 62.5 MG, BID
     Route: 065
     Dates: start: 20150619
  5. PRAMIPEXOLE. [Concomitant]
     Active Substance: PRAMIPEXOLE
     Indication: PRODUCT USED FOR UNKNOWN INDICATION
     Dosage: 0.35 MG, TID
     Route: 065
     Dates: start: 20150619
  6. FUROSEMIDE. [Concomitant]
     Active Substance: FUROSEMIDE
     Indication: PRODUCT USED FOR UNKNOWN INDICATION
     Dosage: 20 MG, UNK
     Route: 042
     Dates: start: 20150619
  7. LEVODOPA [Concomitant]
     Active Substance: LEVODOPA
     Indication: PRODUCT USED FOR UNKNOWN INDICATION
     Dosage: 125 MG, BID
     Route: 065
     Dates: start: 20150619
  8. PIPERACILLIN AND TAZOBACTAM [Concomitant]
     Active Substance: PIPERACILLIN SODIUM\TAZOBACTAM SODIUM
     Indication: PRODUCT USED FOR UNKNOWN INDICATION
     Dosage: 4.5 G, UNK
     Route: 065
     Dates: start: 20150619, end: 20150620
  9. IRBESARTAN. [Concomitant]
     Active Substance: IRBESARTAN
     Indication: PRODUCT USED FOR UNKNOWN INDICATION
     Dosage: 300 MG, UNK
     Route: 048
     Dates: start: 20150619
  10. HYDROCHLOROTHIAZIDE. [Concomitant]
     Active Substance: HYDROCHLOROTHIAZIDE
     Indication: PRODUCT USED FOR UNKNOWN INDICATION
     Dosage: 25 MG, UNK
     Route: 065
     Dates: start: 20150619
  11. DIAZEPAM. [Concomitant]
     Active Substance: DIAZEPAM
     Indication: PRODUCT USED FOR UNKNOWN INDICATION
     Dosage: 5 MG, UNK
     Route: 042
     Dates: start: 20150619, end: 20150629
  12. ULTIBRO BREEZHALER [Suspect]
     Active Substance: GLYCOPYRRONIUM\INDACATEROL
     Indication: CHRONIC OBSTRUCTIVE PULMONARY DISEASE
     Dosage: UNK
     Route: 055
     Dates: start: 2015, end: 20150618
  13. ESTELLE                            /00022701/ [Concomitant]
     Indication: PRODUCT USED FOR UNKNOWN INDICATION
     Dosage: UNK
     Route: 065
     Dates: start: 20150619
  14. ESTELLE                            /00022701/ [Concomitant]
     Dosage: UNK
     Route: 065
     Dates: start: 20150619
  15. ESTELLE                            /00022701/ [Concomitant]
     Dosage: UNK
     Route: 065
     Dates: start: 20150619
  16. SELEGILINE [Concomitant]
     Active Substance: SELEGILINE
     Indication: PRODUCT USED FOR UNKNOWN INDICATION
     Dosage: 5 MG, QD
     Route: 065
     Dates: start: 20150619
  17. TRIMIPRAMINE [Concomitant]
     Active Substance: TRIMIPRAMINE
     Indication: PRODUCT USED FOR UNKNOWN INDICATION
     Dosage: 50 MG, UNK
     Route: 065
     Dates: start: 20150619
  18. MIDAZOLAM [Concomitant]
     Active Substance: MIDAZOLAM\MIDAZOLAM HYDROCHLORIDE
     Indication: PRODUCT USED FOR UNKNOWN INDICATION
     Dosage: 1 MG, UNK
     Route: 042
     Dates: start: 20150619, end: 20150629
  19. SIMVASTATINE [Concomitant]
     Active Substance: SIMVASTATIN
     Indication: PRODUCT USED FOR UNKNOWN INDICATION
     Dosage: 20 MG, UNK
     Route: 048
     Dates: start: 20150619, end: 20150620
  20. TRIAMTERENE AND HYDROCHLOROTHIAZID [Concomitant]
     Active Substance: HYDROCHLOROTHIAZIDE\TRIAMTERENE
     Indication: PRODUCT USED FOR UNKNOWN INDICATION
     Dosage: 1 DF, UNK
     Route: 065
     Dates: start: 20150619
  21. METFORMIN [Concomitant]
     Active Substance: METFORMIN HYDROCHLORIDE
     Indication: PRODUCT USED FOR UNKNOWN INDICATION
     Dosage: 500 MG, UNK
     Route: 065
     Dates: start: 20150619
  22. MORPHIN HCL [Concomitant]
     Active Substance: MORPHINE HYDROCHLORIDE
     Indication: PRODUCT USED FOR UNKNOWN INDICATION
     Dosage: UNK
     Route: 042
     Dates: start: 20150619, end: 20150629

REACTIONS (33)
  - Pneumonia klebsiella [Recovering/Resolving]
  - Supraventricular tachycardia [Recovering/Resolving]
  - Mitral valve incompetence [Recovering/Resolving]
  - Atrial fibrillation [Recovering/Resolving]
  - C-reactive protein increased [Recovering/Resolving]
  - Metabolic acidosis [Recovering/Resolving]
  - Cardiac failure [Recovering/Resolving]
  - Right ventricular hypertrophy [Recovering/Resolving]
  - Goitre [Unknown]
  - Sepsis [Recovering/Resolving]
  - Renal failure [Recovering/Resolving]
  - Cardiomyopathy [Recovering/Resolving]
  - Pericardial effusion [Recovering/Resolving]
  - Delirium [Recovering/Resolving]
  - Urinary retention [Recovering/Resolving]
  - Renal cyst [Unknown]
  - Product use issue [Unknown]
  - Respiration abnormal [Recovered/Resolved]
  - Hepatomegaly [Unknown]
  - Lung infiltration [Recovering/Resolving]
  - Breath sounds abnormal [Recovering/Resolving]
  - Urosepsis [Recovering/Resolving]
  - Chest discomfort [Recovering/Resolving]
  - Pyrexia [Recovering/Resolving]
  - Hepatic steatosis [Unknown]
  - Hypotension [Recovering/Resolving]
  - Hypercapnia [Recovering/Resolving]
  - Inflammatory marker increased [Recovering/Resolving]
  - Splenomegaly [Recovering/Resolving]
  - Dyspnoea [Recovered/Resolved]
  - General physical health deterioration [Recovering/Resolving]
  - Rhonchi [Recovering/Resolving]
  - Gastric disorder [Unknown]

NARRATIVE: CASE EVENT DATE: 201506
